FAERS Safety Report 9492954 (Version 1)
Quarter: 2013Q3

REPORT INFORMATION
  Report Type: Report from Study
  Country: SE (occurrence: SE)
  Receive Date: 20130902
  Receipt Date: 20130902
  Transmission Date: 20140515
  Serious: Yes (Hospitalization)
  Sender: FDA-Public Use
  Company Number: SE-ROCHE-1267582

PATIENT
  Age: 84 Year
  Sex: Male
  Weight: 76.6 kg

DRUGS (8)
  1. RITUXIMAB [Suspect]
     Indication: NON-HODGKIN^S LYMPHOMA
     Route: 042
     Dates: start: 20120918, end: 20130116
  2. INOTUZUMAB OZOGAMICIN [Suspect]
     Indication: NON-HODGKIN^S LYMPHOMA
     Route: 042
     Dates: start: 20120919, end: 20130119
  3. INNOHEP [Concomitant]
     Indication: THROMBOSIS
     Route: 065
     Dates: start: 20130122
  4. DIGOXIN [Concomitant]
     Indication: CARDIAC FAILURE CHRONIC
     Route: 065
     Dates: start: 20110507
  5. SIMVASTATIN [Concomitant]
     Indication: BLOOD CHOLESTEROL INCREASED
  6. FURIX [Concomitant]
     Indication: HYPERTENSION
     Route: 065
     Dates: start: 20100107
  7. MYCOSTATIN [Concomitant]
     Route: 065
     Dates: start: 20121221
  8. NITROGLYCERIN [Concomitant]
     Indication: ANGINA PECTORIS

REACTIONS (1)
  - General physical health deterioration [Recovered/Resolved]
